FAERS Safety Report 5957413-6 (Version None)
Quarter: 2008Q4

REPORT INFORMATION
  Report Type: 
  Country: None (occurrence: None)
  Receive Date: 20081118
  Receipt Date: 20081112
  Transmission Date: 20090506
  Serious: Yes (Hospitalization)
  Sender: FDA-Public Use
  Company Number: US-MERCK-0811USA01726

PATIENT
  Age: 31 Year
  Sex: Male

DRUGS (8)
  1. STROMECTOL [Suspect]
     Indication: STRONGYLOIDIASIS
     Route: 048
  2. STROMECTOL [Suspect]
     Route: 048
  3. RITUXIMAB [Concomitant]
     Indication: STRONGYLOIDIASIS
     Route: 065
  4. THIABENDAZOLE [Suspect]
     Indication: STRONGYLOIDIASIS
     Route: 065
  5. CORTICOSTEROIDS (UNSPECIFIED) [Concomitant]
     Indication: STRONGYLOIDIASIS
     Route: 065
  6. ANTIMICROBIAL (UNSPECIFIED) [Concomitant]
     Indication: STRONGYLOIDIASIS
     Route: 065
  7. MORPHINE [Suspect]
     Route: 065
  8. CEFEPIME [Suspect]
     Route: 065

REACTIONS (5)
  - DRUG INEFFECTIVE [None]
  - DRUG INTERACTION [None]
  - HALLUCINATION [None]
  - OLIGURIA [None]
  - STRONGYLOIDIASIS [None]
